FAERS Safety Report 9845564 (Version 2)
Quarter: 2014Q1

REPORT INFORMATION
  Report Type: Spontaneous
  Country: US (occurrence: US)
  Receive Date: 20140127
  Receipt Date: 20140214
  Transmission Date: 20141002
  Serious: No
  Sender: FDA-Public Use
  Company Number: US-PFIZER INC-2014019781

PATIENT
  Age: 28 Year
  Sex: Female

DRUGS (3)
  1. REVATIO [Suspect]
     Dosage: UNK
     Route: 048
  2. AMBRISENTAN [Suspect]
     Indication: PULMONARY HYPERTENSION
     Dosage: 5 MG, UNK
     Route: 048
     Dates: start: 20130401
  3. AMBRISENTAN [Suspect]
     Indication: CONNECTIVE TISSUE DISORDER

REACTIONS (1)
  - Rash [Unknown]
